FAERS Safety Report 7308814-5 (Version None)
Quarter: 2011Q1

REPORT INFORMATION
  Report Type: 
  Country: None (occurrence: None)
  Receive Date: 20110223
  Receipt Date: 20110217
  Transmission Date: 20110831
  Serious: Yes (Death, Hospitalization)
  Sender: FDA-Public Use
  Company Number: PHHO2011US03231

PATIENT
  Sex: Female
  Weight: 53.86 kg

DRUGS (8)
  1. ZOLEDRONATE [Suspect]
     Indication: METASTASES TO BONE
     Dosage: 4 MG, EVERY 4 WEEKS
     Route: 042
     Dates: start: 20101004
  2. CALCIUM [Concomitant]
  3. VITAMIN D [Concomitant]
  4. TAXOL [Concomitant]
  5. RADIATION [Concomitant]
  6. STRONTIUM [Concomitant]
     Dosage: UNK
     Dates: start: 20011011, end: 20101011
  7. CETUXIMAB [Concomitant]
  8. BEVACIZUMAB [Concomitant]

REACTIONS (22)
  - HYPOCALCAEMIA [None]
  - TRANSFUSION-RELATED ACUTE LUNG INJURY [None]
  - PYREXIA [None]
  - OXYGEN SATURATION DECREASED [None]
  - HYPOALBUMINAEMIA [None]
  - PATHOLOGICAL FRACTURE [None]
  - ACUTE RESPIRATORY DISTRESS SYNDROME [None]
  - PULMONARY OEDEMA [None]
  - HAEMOGLOBIN DECREASED [None]
  - NEOPLASM MALIGNANT [None]
  - DEPRESSED LEVEL OF CONSCIOUSNESS [None]
  - LYMPHOPENIA [None]
  - CHILLS [None]
  - MENTAL STATUS CHANGES [None]
  - LUNG INFILTRATION [None]
  - OSTEOPENIA [None]
  - PAIN [None]
  - ANAEMIA [None]
  - PLATELET COUNT ABNORMAL [None]
  - OSTEOPOROSIS [None]
  - EXTUBATION [None]
  - HYPOTENSION [None]
